FAERS Safety Report 9852325 (Version 1)
Quarter: 2014Q1

REPORT INFORMATION
  Report Type: Spontaneous
  Country: US (occurrence: US)
  Receive Date: 20140129
  Receipt Date: 20140129
  Transmission Date: 20141002
  Serious: Yes (Other)
  Sender: FDA-Public Use
  Company Number: US-SA-2014SA011005

PATIENT
  Age: 70 Year
  Sex: Female

DRUGS (4)
  1. LANTUS SOLOSTAR [Suspect]
     Indication: TYPE 2 DIABETES MELLITUS
     Dosage: DOSE:58 UNIT(S)
     Route: 058
  2. APIDRA SOLOSTAR [Suspect]
     Dosage: DOSE:30 UNIT(S)
     Route: 058
  3. SOLOSTAR [Concomitant]
     Indication: TYPE 2 DIABETES MELLITUS
  4. SOLOSTAR [Concomitant]

REACTIONS (4)
  - Back injury [Unknown]
  - Thrombosis [Unknown]
  - Cataract [Unknown]
  - Visual acuity reduced [Unknown]
